FAERS Safety Report 24191018 (Version 1)
Quarter: 2024Q3

REPORT INFORMATION
  Report Type: Spontaneous
  Country: DE (occurrence: None)
  Receive Date: 20240808
  Receipt Date: 20240808
  Transmission Date: 20241016
  Serious: Yes (Other)
  Sender: ASTRAZENECA
  Company Number: 2024A180475

PATIENT
  Age: 35 Year
  Sex: Female
  Weight: 100 kg

DRUGS (7)
  1. QUETIAPINE [Suspect]
     Active Substance: QUETIAPINE
     Indication: Sleep disorder
     Dates: start: 20230508, end: 20240220
  2. LITHIUM CARBONATE [Suspect]
     Active Substance: LITHIUM CARBONATE
     Indication: Bipolar disorder
  3. MISOPROSTOL [Concomitant]
     Active Substance: MISOPROSTOL
     Indication: Labour induction
  4. COMIRNATY [Concomitant]
     Indication: COVID-19 immunisation
     Dates: start: 20231213, end: 20231213
  5. INFLUENZA VIRUS VACCINE [Concomitant]
     Active Substance: INFLUENZA VIRUS VACCINE
     Indication: Immunisation
     Dates: start: 20231019, end: 20231019
  6. LEVOTHYROXINE SODIUM [Concomitant]
     Active Substance: LEVOTHYROXINE SODIUM
     Indication: Hypothyroidism
     Dosage: 50 [?G/D ]50UG/INHAL DAILY
     Dates: start: 20230508, end: 20240220
  7. BOOSTRIX [Concomitant]
     Active Substance: TETANUS TOXOID, REDUCED DIPHTHERIA TOXOID AND ACELLULAR PERTUSSIS VACCINE, ADSORBED ANTIGENS
     Indication: Immunisation
     Dates: start: 20231115, end: 20231115

REACTIONS (3)
  - Gestational diabetes [Unknown]
  - Polyhydramnios [Unknown]
  - Exposure during pregnancy [Recovered/Resolved]
